FAERS Safety Report 5367892-3 (Version None)
Quarter: 2007Q2

REPORT INFORMATION
  Report Type: 
  Country: None (occurrence: None)
  Receive Date: 20070622
  Receipt Date: 20070620
  Transmission Date: 20071010
  Serious: Yes (Hospitalization)
  Sender: FDA-Public Use
  Company Number: DE-ROXANE LABORATORIES, INC-2007-DE-03659GD

PATIENT
  Age: 74 Year
  Sex: Male

DRUGS (6)
  1. SERTRALINE [Suspect]
     Indication: MAJOR DEPRESSION
     Dosage: HIGH DOSE
  2. MIRTAZAPINE [Suspect]
     Indication: MAJOR DEPRESSION
     Dosage: HIGH DOSE
  3. VENLAFAXINE HCL [Suspect]
     Indication: MAJOR DEPRESSION
     Dosage: HIGH DOSE
  4. CLOMIPRAMINE HCL [Suspect]
     Indication: MAJOR DEPRESSION
     Dosage: HIGH DOSE
  5. TYLENOL W/ CODEINE NO. 3 [Suspect]
     Indication: MAJOR DEPRESSION
  6. CARBAMAZEPINE [Concomitant]
     Indication: BIPOLAR I DISORDER

REACTIONS (1)
  - DRUG INEFFECTIVE [None]
